FAERS Safety Report 22324064 (Version 2)
Quarter: 2023Q2

REPORT INFORMATION
  Report Type: Spontaneous
  Country: US (occurrence: US)
  Receive Date: 20230516
  Receipt Date: 20230608
  Transmission Date: 20230721
  Serious: No
  Sender: FDA-Public Use
  Company Number: US-SANOFI-01615164

PATIENT
  Age: 70 Year
  Sex: Male
  Weight: 68.2 kg

DRUGS (4)
  1. SARCLISA [Suspect]
     Active Substance: ISATUXIMAB-IRFC
     Indication: Plasma cell myeloma
     Dosage: UNK
  2. SARCLISA [Suspect]
     Active Substance: ISATUXIMAB-IRFC
     Dosage: 500 MG
     Dates: start: 20230426
  3. SARCLISA [Suspect]
     Active Substance: ISATUXIMAB-IRFC
     Dosage: 100 MG
     Dates: start: 20230426
  4. SARCLISA [Suspect]
     Active Substance: ISATUXIMAB-IRFC
     Dosage: 100 MG
     Dates: start: 20230426

REACTIONS (1)
  - Neutrophil count decreased [Recovered/Resolved]

NARRATIVE: CASE EVENT DATE: 20230426
